FAERS Safety Report 6179473-2 (Version None)
Quarter: 2009Q2

REPORT INFORMATION
  Report Type: 
  Country: None (occurrence: None)
  Receive Date: 20090505
  Receipt Date: 20090427
  Transmission Date: 20091009
  Serious: Yes (Death)
  Sender: FDA-Public Use
  Company Number: CA-ROCHE-568256

PATIENT
  Sex: Male

DRUGS (6)
  1. CAPECITABINE [Suspect]
     Indication: METASTATIC GASTRIC CANCER
     Dosage: DOSAGE REGIMEN: 1350 MG QAM AND 1300 MG QPM
     Route: 048
     Dates: start: 20080506, end: 20080526
  2. CAPECITABINE [Suspect]
     Route: 048
     Dates: start: 20080527, end: 20080603
  3. CAPECITABINE [Suspect]
     Route: 048
     Dates: start: 20080604
  4. CAPECITABINE [Suspect]
     Route: 048
  5. EPIRUBICIN [Concomitant]
     Indication: METASTATIC GASTRIC CANCER
     Route: 042
     Dates: start: 20080506
  6. CARBOPLATIN [Concomitant]
     Indication: METASTATIC GASTRIC CANCER
     Route: 042
     Dates: start: 20080506

REACTIONS (3)
  - DEATH [None]
  - FEBRILE NEUTROPENIA [None]
  - HYPOTENSION [None]
